FAERS Safety Report 23610516 (Version 2)
Quarter: 2024Q1

REPORT INFORMATION
  Report Type: Spontaneous
  Country: US (occurrence: US)
  Receive Date: 20240308
  Receipt Date: 20240316
  Transmission Date: 20240410
  Serious: No
  Sender: FDA-Public Use
  Company Number: US-Accord-411592

PATIENT
  Age: 60 Year
  Sex: Female
  Weight: 60.33 kg

DRUGS (4)
  1. LEVOTHYROXINE SODIUM [Suspect]
     Active Substance: LEVOTHYROXINE SODIUM
     Indication: Hypothyroidism
     Dosage: FOR AT LEAST ONE YEAR
     Route: 048
  2. GABAPENTIN [Concomitant]
     Active Substance: GABAPENTIN
  3. OMEPRAZOLE [Concomitant]
     Active Substance: OMEPRAZOLE
  4. CANDESARTAN [Concomitant]
     Active Substance: CANDESARTAN
     Indication: Migraine
     Dosage: 4MG DOSE SPLITS TABLET ONLY TAKES 2MG

REACTIONS (2)
  - Blood immunoglobulin A decreased [Unknown]
  - Blood immunoglobulin G increased [Unknown]

NARRATIVE: CASE EVENT DATE: 20221201
